FAERS Safety Report 5279686-8 (Version None)
Quarter: 2007Q1

REPORT INFORMATION
  Report Type: 
  Country: None (occurrence: None)
  Receive Date: 20070323
  Receipt Date: 20070314
  Transmission Date: 20070707
  Serious: Yes (Hospitalization, Other)
  Sender: FDA-Public Use
  Company Number: 2007SP002575

PATIENT
  Age: 49 Year
  Sex: Female
  Weight: 74.8435 kg

DRUGS (7)
  1. PEG-INTRON [Suspect]
     Indication: HEPATITIS C
     Dosage: SC
     Route: 058
     Dates: start: 20041126, end: 20050301
  2. PEG-INTRON [Suspect]
     Indication: HEPATITIS C
     Dosage: SC
     Route: 058
     Dates: start: 20060825
  3. RIBAVIRIN [Suspect]
     Indication: HEPATITIS C
     Dosage: PO
     Route: 048
     Dates: start: 20041126, end: 20050301
  4. RIBAVIRIN [Suspect]
     Indication: HEPATITIS C
     Dosage: PO
     Route: 048
     Dates: start: 20060825
  5. AMBIEN [Concomitant]
  6. PAXIL [Concomitant]
  7. TYLENOL EXTRA-STRENGTH [Concomitant]

REACTIONS (25)
  - ALOPECIA [None]
  - ANAEMIA [None]
  - ANOREXIA [None]
  - BRAIN SCAN ABNORMAL [None]
  - CEREBRAL CALCIFICATION [None]
  - CEREBROVASCULAR ACCIDENT [None]
  - CHEST PAIN [None]
  - DEHYDRATION [None]
  - DEPRESSION [None]
  - DRY MOUTH [None]
  - DRY SKIN [None]
  - DRY THROAT [None]
  - GAIT DISTURBANCE [None]
  - GLOSSODYNIA [None]
  - HEADACHE [None]
  - HYPERTENSION [None]
  - HYPOKINESIA [None]
  - INJECTION SITE DISCOLOURATION [None]
  - INJECTION SITE MASS [None]
  - INJECTION SITE PAIN [None]
  - IRRITABILITY [None]
  - PRURITUS [None]
  - TONGUE DISORDER [None]
  - VOMITING [None]
  - WEIGHT DECREASED [None]
